FAERS Safety Report 15731457 (Version 1)
Quarter: 2018Q4

REPORT INFORMATION
  Report Type: Spontaneous
  Country: SE (occurrence: SE)
  Receive Date: 20181217
  Receipt Date: 20181217
  Transmission Date: 20190205
  Serious: Yes (Life-Threatening, Other)
  Sender: FDA-Public Use
  Company Number: SE-MYLANLABS-2018M1093551

PATIENT
  Sex: Male

DRUGS (1)
  1. ERY-MAX [Suspect]
     Active Substance: ERYTHROMYCIN
     Indication: PRODUCT USED FOR UNKNOWN INDICATION
     Dosage: UNK

REACTIONS (6)
  - Hepatic cirrhosis [Unknown]
  - Toxicity to various agents [Unknown]
  - Autoimmune hepatitis [Unknown]
  - Adverse event [Unknown]
  - Hepatic fibrosis [Unknown]
  - Acute hepatic failure [Unknown]

NARRATIVE: CASE EVENT DATE: 2010
